FAERS Safety Report 12383865 (Version 1)
Quarter: 2016Q2

REPORT INFORMATION
  Report Type: Spontaneous
  Country: JP (occurrence: JP)
  Receive Date: 20160519
  Receipt Date: 20160519
  Transmission Date: 20160815
  Serious: Yes (Other)
  Sender: FDA-Public Use
  Company Number: JP-PFIZER INC-2016251670

PATIENT
  Age: 57 Year
  Sex: Female

DRUGS (1)
  1. LYRICA [Suspect]
     Active Substance: PREGABALIN
     Dosage: 75 MG, 1X/DAY
     Route: 048
     Dates: start: 20160304

REACTIONS (4)
  - Rectal cancer [Unknown]
  - Constipation [Unknown]
  - Faeces hard [Unknown]
  - Abnormal faeces [Unknown]

NARRATIVE: CASE EVENT DATE: 201603
